FAERS Safety Report 9259761 (Version 2)
Quarter: 2013Q3

REPORT INFORMATION
  Report Type: Spontaneous
  Country: US (occurrence: US)
  Receive Date: 20130429
  Receipt Date: 20130725
  Transmission Date: 20140515
  Serious: No
  Sender: FDA-Public Use
  Company Number: US-BIOGENIDEC-2013BI037506

PATIENT
  Age: 47 Year
  Sex: Female

DRUGS (1)
  1. TYSABRI [Suspect]
     Indication: MULTIPLE SCLEROSIS
     Route: 042
     Dates: start: 20130327

REACTIONS (9)
  - Infusion site coldness [Recovered/Resolved]
  - Phobia [Recovered/Resolved]
  - Anxiety [Recovered/Resolved]
  - Crying [Recovered/Resolved]
  - Weight increased [Recovered/Resolved]
  - Discomfort [Unknown]
  - Drug ineffective [Recovered/Resolved]
  - Infusion site pain [Recovered/Resolved]
  - Fatigue [Recovered/Resolved]
